FAERS Safety Report 4408759-4 (Version None)
Quarter: 2004Q3

REPORT INFORMATION
  Report Type: 
  Country: None (occurrence: None)
  Receive Date: 20040727
  Receipt Date: 20040706
  Transmission Date: 20050211
  Serious: Yes (Death)
  Sender: FDA-Public Use
  Company Number: PHEH2004US07276

PATIENT
  Age: 30 Year
  Sex: Male

DRUGS (7)
  1. CLOZARIL [Suspect]
     Indication: SCHIZOPHRENIA
     Dosage: 400 MG/DAY
     Route: 048
     Dates: start: 19990101, end: 20040430
  2. SEROQUEL [Interacting]
  3. FLUVOXAMINE [Interacting]
  4. PREVACID [Concomitant]
  5. ALBUTEROL [Concomitant]
  6. ADVAIR DISKUS 100/50 [Concomitant]
  7. MIRALAX [Concomitant]

REACTIONS (4)
  - ACCIDENT [None]
  - CHEST PAIN [None]
  - DRUG LEVEL INCREASED [None]
  - DRUG TOXICITY [None]
